FAERS Safety Report 10931625 (Version 1)
Quarter: 2015Q1

REPORT INFORMATION
  Report Type: Spontaneous
  Country: US (occurrence: US)
  Receive Date: 20150319
  Receipt Date: 20150319
  Transmission Date: 20150721
  Serious: No
  Sender: FDA-Public Use
  Company Number: US-BAUSCH-BL-2014-006851

PATIENT

DRUGS (1)
  1. TRETINOIN CREAM 0.025% [Suspect]
     Active Substance: TRETINOIN
     Indication: PIGMENTATION DISORDER
     Route: 061
     Dates: start: 2014

REACTIONS (2)
  - Skin wrinkling [Unknown]
  - Drug ineffective [Unknown]
